FAERS Safety Report 11071065 (Version 2)
Quarter: 2015Q3

REPORT INFORMATION
  Report Type: Report from Study
  Country: ZA (occurrence: ZA)
  Receive Date: 20150428
  Receipt Date: 20150731
  Transmission Date: 20151125
  Serious: Yes (Death, Hospitalization, Other)
  Sender: FDA-Public Use
  Company Number: ZA-AMGEN-ZAFSL2015039363

PATIENT
  Age: 72 Year
  Sex: Female

DRUGS (1)
  1. ARANESP [Suspect]
     Active Substance: DARBEPOETIN ALFA
     Indication: HAEMODIALYSIS
     Dosage: 80 MUG, 2 TIMES/WK
     Route: 042
     Dates: start: 20140328, end: 201504

REACTIONS (2)
  - Chronic kidney disease [Fatal]
  - Nephrectomy [Fatal]

NARRATIVE: CASE EVENT DATE: 201504
